FAERS Safety Report 7338061-2 (Version None)
Quarter: 2011Q1

REPORT INFORMATION
  Report Type: 
  Country: None (occurrence: None)
  Receive Date: 20110308
  Receipt Date: 20110223
  Transmission Date: 20110831
  Serious: Yes (Disabling, Other)
  Sender: FDA-Public Use
  Company Number: PHHY2011CY14602

PATIENT
  Sex: Male

DRUGS (7)
  1. ACLASTA [Suspect]
     Indication: OSTEOPOROSIS
     Dosage: 5 MG / 100 ML
     Dates: start: 20071001
  2. AZATHIOPRINE [Concomitant]
     Dosage: 50 MG, BID
     Route: 048
     Dates: start: 20010101
  3. INFLIXIMAB [Concomitant]
     Dosage: 5 MG/ BODY WEIGHT
     Route: 042
     Dates: start: 20080101
  4. VITAMIN D [Concomitant]
  5. CALCIUM [Concomitant]
  6. ACLASTA [Suspect]
     Dosage: 5 MG / 100 ML
     Dates: start: 20090101
  7. CANDESARTAN [Concomitant]
     Dosage: 10 MG,
     Route: 048
     Dates: start: 20060101

REACTIONS (1)
  - OSTEONECROSIS OF JAW [None]
